FAERS Safety Report 5757382-8 (Version None)
Quarter: 2008Q2

REPORT INFORMATION
  Report Type: 
  Country: None (occurrence: None)
  Receive Date: 20080603
  Receipt Date: 20080522
  Transmission Date: 20081010
  Serious: Yes (Other)
  Sender: FDA-Public Use
  Company Number: JP-SANOFI-SYNTHELABO-A01200805746

PATIENT
  Sex: Male

DRUGS (4)
  1. AVASTIN [Suspect]
     Route: 041
     Dates: start: 20080410, end: 20080424
  2. ISOVORIN [Suspect]
     Dosage: UNK
     Route: 041
  3. FLUOROURACIL [Suspect]
     Dosage: UNK
     Route: 041
  4. ELPLAT [Suspect]
     Indication: COLON CANCER
     Dosage: UNK
     Route: 041

REACTIONS (1)
  - SHOCK [None]
